FAERS Safety Report 9717144 (Version 1)
Quarter: 2013Q4

REPORT INFORMATION
  Report Type: Spontaneous
  Country: IT (occurrence: IT)
  Receive Date: 20131127
  Receipt Date: 20131127
  Transmission Date: 20140711
  Serious: Yes (Hospitalization)
  Sender: FDA-Public Use
  Company Number: IT-MYLANLABS-2013S1026160

PATIENT
  Age: 46 Year
  Sex: Female

DRUGS (2)
  1. ALPRAZOLAM [Suspect]
     Route: 048
     Dates: start: 20130815, end: 20130815
  2. ESOMEPRAZOLE [Suspect]
     Route: 048
     Dates: start: 20130815, end: 20130815

REACTIONS (4)
  - Intentional self-injury [Unknown]
  - Sopor [Unknown]
  - Drug abuse [Unknown]
  - Overdose [Unknown]
